FAERS Safety Report 5009824-3 (Version None)
Quarter: 2006Q2

REPORT INFORMATION
  Report Type: 
  Country: None (occurrence: None)
  Receive Date: 20060522
  Receipt Date: 20060511
  Transmission Date: 20061013
  Serious: Yes (Hospitalization, Other)
  Sender: FDA-Public Use
  Company Number: 2006063333

PATIENT
  Age: 12 Year
  Sex: Female

DRUGS (1)
  1. SOMATROPIN (SOMATROPIN) [Suspect]
     Indication: TURNER'S SYNDROME
     Dosage: (0.33 MG/KG, 0.33 MG/KG/WEEK), SUBCUTANEOUS
     Route: 058

REACTIONS (3)
  - ASTHENIA [None]
  - CONVULSION [None]
  - HYPOAESTHESIA [None]
